FAERS Safety Report 7703187-8 (Version None)
Quarter: 2011Q3

REPORT INFORMATION
  Report Type: 
  Country: None (occurrence: None)
  Receive Date: 20110823
  Receipt Date: 20110817
  Transmission Date: 20111222
  Serious: Yes (Hospitalization)
  Sender: FDA-Public Use
  Company Number: DE-PFIZER INC-2011189231

PATIENT
  Age: 68 Year
  Sex: Male
  Weight: 70 kg

DRUGS (22)
  1. CELEBREX [Interacting]
     Indication: ARTHRITIS
     Dosage: 200 MG, 1X/DAY
     Route: 048
     Dates: start: 20100902, end: 20100902
  2. LORAZEPAM [Suspect]
     Dosage: 1 MG, 1X/DAY
     Dates: start: 20100902, end: 20100902
  3. AMLODIPINE BESYLATE [Interacting]
     Dosage: 5 MG, 1X/DAY
     Route: 048
     Dates: end: 20100824
  4. LITHIUM CARBONATE [Suspect]
     Dosage: 450 MG, 1X/DAY
     Route: 048
     Dates: start: 20100830, end: 20100901
  5. LITHIUM CARBONATE [Suspect]
     Dosage: 900 MG, 1X/DAY
     Route: 048
     Dates: start: 20100902, end: 20100907
  6. TRIMIPRAMINE MALEATE [Suspect]
     Dosage: 75 MG, 1X/DAY
     Route: 048
     Dates: start: 20090101, end: 20100831
  7. METOPROLOL SUCCINATE [Interacting]
     Dosage: 95 MG, 1X/DAY
     Route: 048
  8. AMLODIPINE BESYLATE [Interacting]
     Dosage: 7.5 MG, 1X/DAY
     Route: 048
     Dates: start: 20100825
  9. TRAZODONE HCL [Suspect]
     Dosage: 112.5 MG, 1X/DAY
     Route: 048
     Dates: start: 20100826, end: 20100831
  10. TRIMIPRAMINE MALEATE [Suspect]
     Dosage: 25 MG, 1X/DAY
     Route: 048
     Dates: start: 20100902, end: 20100903
  11. RISPERDAL [Concomitant]
     Dosage: 2 MG, 1X/DAY
     Route: 048
     Dates: start: 20100818, end: 20100818
  12. RISPERDAL [Concomitant]
     Dosage: 3 MG, 1X/DAY
     Route: 048
     Dates: start: 20100819
  13. PANTOPRAZOLE [Concomitant]
     Dosage: 20 MG, 1X/DAY
     Route: 048
  14. SIMVASTATIN [Concomitant]
     Dosage: 40 MG, 1X/DAY
     Route: 048
  15. CELEBREX [Interacting]
     Dosage: 500 MG, 1X/DAY
     Route: 048
     Dates: start: 20100903
  16. LORAZEPAM [Suspect]
     Dosage: 2 MG, 1X/DAY
     Dates: start: 20100818, end: 20100831
  17. LORAZEPAM [Suspect]
     Dosage: 1.5 MG, 1X/DAY
     Dates: start: 20100901, end: 20100901
  18. TRAZODONE HCL [Suspect]
     Dosage: 150 MG, 1X/DAY
     Route: 048
     Dates: start: 20100901
  19. TRIMIPRAMINE MALEATE [Suspect]
     Dosage: 50 MG, 1X/DAY
     Route: 048
     Dates: start: 20100901, end: 20100901
  20. LEVOTHYROXINE SODIUM [Concomitant]
     Dosage: 150 UG, 1X/DAY
     Route: 048
  21. LORAZEPAM [Suspect]
     Dosage: 1 MG, 1X/DAY
     Dates: start: 20100816, end: 20100817
  22. TRAZODONE HCL [Suspect]
     Dosage: 75 MG, 1X/DAY
     Route: 048
     Dates: start: 20100823, end: 20100825

REACTIONS (2)
  - DRUG INTERACTION [None]
  - SEROTONIN SYNDROME [None]
